FAERS Safety Report 4950051-3 (Version None)
Quarter: 2006Q1

REPORT INFORMATION
  Report Type: 
  Country: None (occurrence: None)
  Receive Date: 20060320
  Receipt Date: 20060320
  Transmission Date: 20060701
  Serious: Yes (Life-Threatening)
  Sender: FDA-Public Use
  Company Number: None

PATIENT
  Sex: Female
  Weight: 54.4316 kg

DRUGS (1)
  1. LEVAQUIN [Suspect]
     Indication: CYSTITIS
     Dosage: 5 ONE EVERY DAY PO
     Route: 048
     Dates: start: 20060314, end: 20060314

REACTIONS (4)
  - ANAPHYLACTOID REACTION [None]
  - COUGH [None]
  - ORTHOSTATIC HYPOTENSION [None]
  - VISUAL FIELD DEFECT [None]
